FAERS Safety Report 7338098-3 (Version None)
Quarter: 2011Q1

REPORT INFORMATION
  Report Type: 
  Country: None (occurrence: None)
  Receive Date: 20110308
  Receipt Date: 20110223
  Transmission Date: 20110831
  Serious: Yes (Other)
  Sender: FDA-Public Use
  Company Number: PHHY2010US71902

PATIENT
  Sex: Female

DRUGS (15)
  1. PREDNISONE [Concomitant]
  2. ASCORBIC ACID [Concomitant]
  3. ALBUTEROL SULFATE [Concomitant]
  4. LOVASAL [Concomitant]
  5. VICODIN [Concomitant]
  6. PRO-AIR (PROCATEROL HYDROCHLORIDE) [Concomitant]
  7. COLACE [Concomitant]
  8. PLAQUCINEL [Concomitant]
  9. ADVAIR DISKUS 100/50 [Concomitant]
  10. DILTIAZEM [Concomitant]
  11. CALCIUM [Concomitant]
  12. ZOLPIDEM TARTRATE [Concomitant]
  13. RECLAST [Suspect]
     Indication: OSTEOPOROSIS
     Dosage: UNK
     Dates: start: 20101019
  14. AMBIEN [Concomitant]
  15. VITAMIN D [Concomitant]

REACTIONS (6)
  - DRUG INEFFECTIVE [None]
  - BACK PAIN [None]
  - MOVEMENT DISORDER [None]
  - PAIN [None]
  - WALKING AID USER [None]
  - SPINAL FRACTURE [None]
